FAERS Safety Report 9994400 (Version 6)
Quarter: 2014Q4

REPORT INFORMATION
  Report Type: Report from Study
  Country: US (occurrence: US)
  Receive Date: 20140311
  Receipt Date: 20141215
  Transmission Date: 20150529
  Serious: Yes (Death, Hospitalization)
  Sender: FDA-Public Use
  Company Number: US-BIOGENIDEC-2014BI018628

PATIENT
  Age: 52 Year
  Sex: Male

DRUGS (10)
  1. VITAMIN D [Concomitant]
     Active Substance: CHOLECALCIFEROL
     Route: 048
  2. VITAMIN E [Concomitant]
     Active Substance: .ALPHA.-TOCOPHEROL
     Route: 048
  3. TAMSULOSIN [Concomitant]
     Active Substance: TAMSULOSIN
     Indication: URINARY INCONTINENCE
  4. GABAPENTIN. [Concomitant]
     Active Substance: GABAPENTIN
     Indication: FACIAL PAIN
     Route: 048
  5. TYSABRI [Suspect]
     Active Substance: NATALIZUMAB
     Indication: MULTIPLE SCLEROSIS
     Route: 042
     Dates: start: 20080401, end: 20140206
  6. VITAMIN D [Concomitant]
     Active Substance: CHOLECALCIFEROL
     Route: 048
  7. CENTRUM SILVER [Concomitant]
     Active Substance: VITAMINS
     Route: 048
  8. VITAMIN B COMPLEX [Concomitant]
     Active Substance: CYANOCOBALAMIN\DEXPANTHENOL\NIACINAMIDE\PYRIDOXINE HYDROCHLORIDE\RIBOFLAVIN 5^-PHOSPHATE SODIUM\THIAMINE HYDROCHLORIDE\VITAMIN B COMPLEX
     Route: 048
  9. VITAMIN D [Concomitant]
     Active Substance: CHOLECALCIFEROL
     Route: 048
  10. TAMSULOSIN [Concomitant]
     Active Substance: TAMSULOSIN
     Indication: POLLAKIURIA

REACTIONS (6)
  - Immune reconstitution inflammatory syndrome [Not Recovered/Not Resolved]
  - Progressive multifocal leukoencephalopathy [Not Recovered/Not Resolved]
  - Fall [Unknown]
  - Toxicity to various agents [Unknown]
  - Multiple sclerosis relapse [Unknown]
  - Pneumonia aspiration [Fatal]

NARRATIVE: CASE EVENT DATE: 20140217
